FAERS Safety Report 19767117 (Version 1)
Quarter: 2021Q3

REPORT INFORMATION
  Report Type: Spontaneous
  Country: US (occurrence: US)
  Receive Date: 20210830
  Receipt Date: 20210830
  Transmission Date: 20211014
  Serious: No
  Sender: FDA-Public Use
  Company Number: None

PATIENT
  Age: 37 Year
  Sex: Male
  Weight: 101.25 kg

DRUGS (3)
  1. ALBUTEROL SULFATE INHALATION AEROSOL, ALBUTEROL, GENERIC PROAIR HFA [Suspect]
     Active Substance: ALBUTEROL SULFATE
     Indication: ASTHMA
     Dosage: ?          OTHER STRENGTH:MCG;QUANTITY:2 PUFF(S);?
     Route: 055
     Dates: start: 20210825, end: 20210826
  2. ALCOHOL. [Concomitant]
     Active Substance: ALCOHOL
  3. ALBUTEROL. [Concomitant]
     Active Substance: ALBUTEROL

REACTIONS (7)
  - Oral discomfort [None]
  - Throat irritation [None]
  - Product substitution issue [None]
  - Paraesthesia oral [None]
  - Hypersensitivity [None]
  - Hypoaesthesia oral [None]
  - Ageusia [None]

NARRATIVE: CASE EVENT DATE: 20210826
